FAERS Safety Report 9728294 (Version 1)
Quarter: 2013Q4

REPORT INFORMATION
  Report Type: Spontaneous
  Country: GB (occurrence: GB)
  Receive Date: 20131204
  Receipt Date: 20131204
  Transmission Date: 20140711
  Serious: Yes (Hospitalization)
  Sender: FDA-Public Use
  Company Number: GB-DRREDDYS-GER/UKI/13/0036034

PATIENT
  Age: 91 Year
  Sex: Female

DRUGS (3)
  1. RIVASTIGMINE [Suspect]
     Indication: DEMENTIA
     Dates: start: 2013, end: 20131021
  2. MIRTAZAPINE [Concomitant]
     Indication: PSYCHIATRIC SYMPTOM
     Route: 048
  3. OMEPRAZOLE [Concomitant]
     Indication: GASTROINTESTINAL DISORDER
     Route: 048

REACTIONS (1)
  - Atrioventricular block complete [Not Recovered/Not Resolved]
